APPROVED DRUG PRODUCT: SORBITOL 3% IN PLASTIC CONTAINER
Active Ingredient: SORBITOL
Strength: 3GM/100ML
Dosage Form/Route: SOLUTION;IRRIGATION
Application: N018512 | Product #001
Applicant: BAXTER HEALTHCARE CORP
Approved: May 27, 1982 | RLD: No | RS: No | Type: DISCN